FAERS Safety Report 8405376-6 (Version None)
Quarter: 2012Q2

REPORT INFORMATION
  Report Type: 
  Country: None (occurrence: None)
  Receive Date: 20120604
  Receipt Date: 20120523
  Transmission Date: 20120825
  Serious: Yes (Hospitalization, Other)
  Sender: FDA-Public Use
  Company Number: JP-AMGEN-JPNSP2012022100

PATIENT
  Age: 68 Year
  Sex: Female
  Weight: 56 kg

DRUGS (11)
  1. FOLIAMIN [Concomitant]
     Indication: RHEUMATOID ARTHRITIS
     Dosage: UNK
     Route: 048
  2. CRESTOR [Concomitant]
     Dosage: 2.5 MG, 1X/DAY
     Route: 048
  3. AMLODIPINE [Concomitant]
     Dosage: 5 MG, 1X/DAY
     Route: 048
  4. ASPIRIN [Concomitant]
     Indication: CEREBRAL INFARCTION
     Dosage: 100 MG, 1X/DAY
     Route: 048
  5. RHEUMATREX [Suspect]
     Indication: RHEUMATOID ARTHRITIS
     Dosage: 2 MG, 1X/DAY
     Route: 048
     Dates: end: 20111219
  6. GASLON [Concomitant]
     Dosage: 2 MG, 1X/DAY
     Route: 048
  7. VOLTAREN [Concomitant]
     Dosage: 37.5 MG, AS NEEDED
     Route: 048
  8. OLMESARTAN MEDOXOMIL [Concomitant]
     Dosage: 20 MG, 1X/DAY
     Route: 048
  9. DEPAS [Concomitant]
     Dosage: 0.5 MG, 2X/DAY
     Route: 048
  10. MUCOSTA [Concomitant]
     Dosage: 100 MG, AS NEEDED
     Route: 048
  11. ENBREL [Suspect]
     Indication: RHEUMATOID ARTHRITIS
     Dosage: 25 MG, WEEKLY
     Route: 058
     Dates: start: 20110201, end: 20111219

REACTIONS (4)
  - LUNG DISORDER [None]
  - LIVER DISORDER [None]
  - ORGANISING PNEUMONIA [None]
  - OPPORTUNISTIC INFECTION [None]
